FAERS Safety Report 6140406-6 (Version None)
Quarter: 2009Q1

REPORT INFORMATION
  Report Type: 
  Country: None (occurrence: None)
  Receive Date: 20090331
  Receipt Date: 20090316
  Transmission Date: 20090719
  Serious: Yes (Disabling, Other)
  Sender: FDA-Public Use
  Company Number: DSU-2009-00013

PATIENT
  Age: 58 Year
  Sex: Female
  Weight: 54.4316 kg

DRUGS (2)
  1. BENICAR [Suspect]
     Indication: HYPERTENSION
     Dosage: 20 MG (20 MG, QD), PER ORAL, 20 MG (20 MG, QD), PER ORAL
     Route: 048
     Dates: start: 20080701
  2. LIPITOR [Concomitant]

REACTIONS (6)
  - ACCIDENT AT WORK [None]
  - BACK INJURY [None]
  - FALL [None]
  - NECK INJURY [None]
  - UPPER LIMB FRACTURE [None]
  - VERTEBRAL INJURY [None]
